FAERS Safety Report 7134844-2 (Version None)
Quarter: 2010Q4

REPORT INFORMATION
  Report Type: 
  Country: None (occurrence: None)
  Receive Date: 20101203
  Receipt Date: 20101130
  Transmission Date: 20110411
  Serious: Yes (Death)
  Sender: FDA-Public Use
  Company Number: US-CELGENEUS-163-21880-10101828

PATIENT
  Sex: Male

DRUGS (2)
  1. REVLIMID [Suspect]
     Dates: start: 20090601
  2. REVLIMID [Suspect]
     Dates: start: 20091201

REACTIONS (2)
  - ACUTE MYELOID LEUKAEMIA [None]
  - MYELODYSPLASTIC SYNDROME TRANSFORMATION [None]
